FAERS Safety Report 5024758-6 (Version None)
Quarter: 2006Q2

REPORT INFORMATION
  Report Type: 
  Country: None (occurrence: None)
  Receive Date: 20060613
  Receipt Date: 20060601
  Transmission Date: 20061013
  Serious: Yes (Other)
  Sender: FDA-Public Use
  Company Number: US-BRISTOL-MYERS SQUIBB COMPANY-13397906

PATIENT
  Age: 76 Year
  Sex: Female
  Weight: 54 kg

DRUGS (2)
  1. KENALOG [Suspect]
     Indication: RETINAL VEIN OCCLUSION
     Route: 021
     Dates: start: 20060518
  2. KENALOG [Suspect]
     Indication: RETINAL OEDEMA
     Route: 021
     Dates: start: 20060518

REACTIONS (1)
  - BLINDNESS [None]
